FAERS Safety Report 10092163 (Version 2)
Quarter: 2014Q2

REPORT INFORMATION
  Report Type: Spontaneous
  Country: US (occurrence: US)
  Receive Date: 20140421
  Receipt Date: 20140421
  Transmission Date: 20141212
  Serious: No
  Sender: FDA-Public Use
  Company Number: US-SANOFI-AVENTIS-2012SA020865

PATIENT
  Age: 72 Year
  Sex: Female
  Weight: 66 kg

DRUGS (6)
  1. ALLEGRA [Suspect]
     Indication: HYPERSENSITIVITY
     Route: 048
     Dates: start: 2011, end: 20120328
  2. IPRATROPIUM BROMIDE/SALBUTAMOL SULFATE [Concomitant]
     Indication: PROPHYLAXIS
     Dates: start: 2003
  3. ADVAIR [Concomitant]
     Dates: start: 2006
  4. TYLENOL [Concomitant]
     Indication: PAIN
     Dates: start: 2000
  5. TRIAMCINOLONE [Concomitant]
     Indication: IRRITABILITY
     Dates: start: 2000
  6. PREMARIN VAGINAL CREAM [Concomitant]
     Indication: VAGINAL DISORDER
     Dates: start: 2000

REACTIONS (1)
  - Tinnitus [Not Recovered/Not Resolved]
